FAERS Safety Report 12289932 (Version 1)
Quarter: 2016Q2

REPORT INFORMATION
  Report Type: Spontaneous
  Country: FR (occurrence: FR)
  Receive Date: 20160421
  Receipt Date: 20160421
  Transmission Date: 20160815
  Serious: Yes (Hospitalization)
  Sender: FDA-Public Use
  Company Number: FR-STRIDES ARCOLAB LIMITED-2016SP002598

PATIENT

DRUGS (3)
  1. DEXAMETHASONE. [Suspect]
     Active Substance: DEXAMETHASONE
     Indication: DIABETIC RETINAL OEDEMA
     Dosage: UNK
  2. MYCOPHENOLATE MOFETIL. [Suspect]
     Active Substance: MYCOPHENOLATE MOFETIL
     Indication: DIABETIC RETINAL OEDEMA
     Dosage: UNK
  3. MYCOPHENOLATE MOFETIL. [Suspect]
     Active Substance: MYCOPHENOLATE MOFETIL
     Indication: NEPHRITIS

REACTIONS (11)
  - Necrotising fasciitis streptococcal [Recovered/Resolved]
  - Visual acuity reduced [Recovered/Resolved]
  - Periorbital oedema [Recovered/Resolved]
  - Vomiting [Recovered/Resolved]
  - Pyrexia [Recovered/Resolved]
  - Conjunctival oedema [Recovered/Resolved]
  - Purulent discharge [Recovered/Resolved]
  - Eye pain [Recovered/Resolved]
  - Cellulitis orbital [Recovered/Resolved]
  - Headache [Recovered/Resolved]
  - Blindness [Not Recovered/Not Resolved]
